FAERS Safety Report 19813527 (Version 1)
Quarter: 2021Q3

REPORT INFORMATION
  Report Type: Spontaneous
  Country: US (occurrence: US)
  Receive Date: 20210908
  Receipt Date: 20210908
  Transmission Date: 20211014
  Serious: Yes (Other)
  Sender: FDA-Public Use
  Company Number: None

PATIENT
  Age: 65 Year
  Sex: Male

DRUGS (9)
  1. DOCUSATE SOD [Concomitant]
  2. XALKORI [Suspect]
     Active Substance: CRIZOTINIB
     Indication: LYMPHADENOPATHY
     Route: 048
     Dates: start: 20170815
  3. MUTLI?CIT [Concomitant]
  4. SENNOSIDES. [Concomitant]
     Active Substance: SENNOSIDES
  5. GLUCOSAMINE [Concomitant]
     Active Substance: GLUCOSAMINE
  6. XARELTO [Concomitant]
     Active Substance: RIVAROXABAN
  7. PROMETH VC [Concomitant]
  8. LEVOTHYROXIN [Concomitant]
     Active Substance: LEVOTHYROXINE
  9. ONDANSETRON [Concomitant]
     Active Substance: ONDANSETRON

REACTIONS (1)
  - Therapy interrupted [None]

NARRATIVE: CASE EVENT DATE: 20210824
